FAERS Safety Report 11680708 (Version 3)
Quarter: 2015Q4

REPORT INFORMATION
  Report Type: Spontaneous
  Country: US (occurrence: US)
  Receive Date: 20151027
  Receipt Date: 20151110
  Transmission Date: 20160304
  Serious: No
  Sender: FDA-Public Use
  Company Number: US-ELI_LILLY_AND_COMPANY-US201010003855

PATIENT
  Age: 86 Year
  Sex: Female
  Weight: 54.42 kg

DRUGS (8)
  1. FORTEO [Suspect]
     Active Substance: TERIPARATIDE
     Dosage: 20 UG, DAILY
  2. FORTEO [Suspect]
     Active Substance: TERIPARATIDE
     Dosage: 20 UG, DAILY
  3. FORTEO [Suspect]
     Active Substance: TERIPARATIDE
     Dosage: 20 UG, QD
  4. FORTEO [Suspect]
     Active Substance: TERIPARATIDE
     Dosage: 20 UG, QD
  5. VITAMIN D [Concomitant]
     Active Substance: CHOLECALCIFEROL
     Dosage: UNK, OTHER
  6. FORTEO [Suspect]
     Active Substance: TERIPARATIDE
     Indication: OSTEOPOROSIS
     Dosage: 20 UG, DAILY
     Route: 065
     Dates: start: 20101012
  7. FORTEO [Suspect]
     Active Substance: TERIPARATIDE
     Dosage: 20 UG, QD
  8. CALCIUM [Concomitant]
     Active Substance: CALCIUM

REACTIONS (14)
  - Abdominal pain upper [Unknown]
  - Bradyphrenia [Unknown]
  - Fall [Unknown]
  - Groin pain [Recovered/Resolved]
  - Pain in extremity [Unknown]
  - Blood calcium increased [Recovered/Resolved]
  - Drug dose omission [Recovered/Resolved]
  - Weight decreased [Not Recovered/Not Resolved]
  - Skin injury [Unknown]
  - Nausea [Unknown]
  - Peripheral swelling [Not Recovered/Not Resolved]
  - Onychomycosis [Unknown]
  - Headache [Unknown]
  - Muscle disorder [Unknown]

NARRATIVE: CASE EVENT DATE: 20101014
